FAERS Safety Report 9911365 (Version 3)
Quarter: 2014Q2

REPORT INFORMATION
  Report Type: Report from Study
  Country: JP (occurrence: JP)
  Receive Date: 20140219
  Receipt Date: 20140506
  Transmission Date: 20141212
  Serious: No
  Sender: FDA-Public Use
  Company Number: JP-ABBVIE-13X-087-1112242-00

PATIENT
  Age: 59 Year
  Sex: Male

DRUGS (9)
  1. LIPACREON [Suspect]
     Indication: PANCREATIC INSUFFICIENCY
     Dosage: DAILY DOSE 900 MG, SACHET
     Route: 048
     Dates: start: 20120919
  2. GEMCITABINE HYDROCHLORIDE [Suspect]
     Indication: PANCREATIC INSUFFICIENCY
     Dosage: 1700 MG/A WEEK OR TWO WEEKS
     Dates: start: 20121112, end: 20130107
  3. GEMCITABINE HYDROCHLORIDE [Suspect]
     Indication: PANCREATIC CARCINOMA
     Dosage: 1400 MG/A WEEK OR TWO WEEKS
     Dates: start: 20130121
  4. ESOMEPRAZOLE MAGNESIUM [Concomitant]
     Indication: PANCREATIC INSUFFICIENCY
     Route: 048
     Dates: start: 20120925
  5. CAMOSTAT MESILATE [Concomitant]
     Indication: PANCREATIC INSUFFICIENCY
     Route: 048
  6. LENOGRASTIM [Concomitant]
     Indication: PRODUCT USED FOR UNKNOWN INDICATION
     Dates: start: 20121119, end: 20121119
  7. LENOGRASTIM [Concomitant]
     Dates: start: 20130204, end: 20130204
  8. LENOGRASTIM [Concomitant]
     Dates: start: 20130225, end: 20130225
  9. ANTI-TUMOR [Concomitant]
     Indication: PRODUCT USED FOR UNKNOWN INDICATION

REACTIONS (3)
  - White blood cell count decreased [Recovered/Resolved]
  - Neutrophil count decreased [Recovering/Resolving]
  - Diabetes mellitus [Not Recovered/Not Resolved]
